FAERS Safety Report 5737004-2 (Version None)
Quarter: 2008Q2

REPORT INFORMATION
  Report Type: 
  Country: None (occurrence: None)
  Receive Date: 20080513
  Receipt Date: 20080513
  Transmission Date: 20081010
  Serious: Yes (Other)
  Sender: FDA-Public Use
  Company Number: None

PATIENT
  Age: 54 Year
  Sex: Female
  Weight: 99.7913 kg

DRUGS (1)
  1. CHANTIX [Suspect]
     Indication: SMOKING CESSATION THERAPY
     Dosage: 1MG 2X DAY PO
     Route: 048
     Dates: start: 20080415, end: 20080502

REACTIONS (9)
  - ANXIETY [None]
  - DISORIENTATION [None]
  - FEELING OF DESPAIR [None]
  - NAUSEA [None]
  - SEXUAL DYSFUNCTION [None]
  - SLEEP TERROR [None]
  - SOMNAMBULISM [None]
  - THINKING ABNORMAL [None]
  - UNEVALUABLE EVENT [None]
